FAERS Safety Report 6288656-2 (Version None)
Quarter: 2009Q3

REPORT INFORMATION
  Report Type: 
  Country: None (occurrence: None)
  Receive Date: 20090729
  Receipt Date: 20090722
  Transmission Date: 20100115
  Serious: Yes (Other)
  Sender: FDA-Public Use
  Company Number: CA-MERCK-0907CAN00111

PATIENT
  Age: 58 Year
  Sex: Female
  Weight: 64 kg

DRUGS (10)
  1. SINGULAIR [Suspect]
     Route: 048
  2. RISEDRONATE SODIUM [Concomitant]
     Route: 065
  3. BETAMETHASONE VALERATE [Concomitant]
     Route: 065
  4. FLUOXETINE [Concomitant]
     Route: 065
  5. LORAZEPAM [Concomitant]
     Route: 065
  6. ESOMEPRAZOLE MAGNESIUM [Concomitant]
     Route: 065
  7. MIRTAZAPINE [Concomitant]
     Route: 065
  8. ALBUTEROL [Concomitant]
  9. BUDESONIDE AND FORMOTEROL FUMARATE [Concomitant]
     Route: 065
  10. ZOPICLONE [Concomitant]
     Route: 065

REACTIONS (2)
  - DEPRESSION [None]
  - SUICIDAL IDEATION [None]
